FAERS Safety Report 8717249 (Version 2)
Quarter: 2012Q4

REPORT INFORMATION
  Report Type: 
  Country: US (occurrence: US)
  Receive Date: 20120810
  Receipt Date: 20120830
  Transmission Date: 20130627
  Serious: No
  Sender: FDA-Public Use
  Company Number: PHHO2011US020331

PATIENT
  Age: 55 None
  Sex: Female
  Weight: 101.4 kg

DRUGS (1)
  1. GILENYA [Suspect]
     Indication: RELAPSING-REMITTING MULTIPLE SCLEROSIS
     Dosage: 0.5 mg, QD
     Route: 048
     Dates: start: 20110614, end: 20111201

REACTIONS (2)
  - No adverse event [Unknown]
  - Death [None]
